FAERS Safety Report 10207670 (Version 2)
Quarter: 2014Q2

REPORT INFORMATION
  Report Type: Report from Study
  Country: US (occurrence: US)
  Receive Date: 20140530
  Receipt Date: 20140620
  Transmission Date: 20141212
  Serious: Yes (Hospitalization)
  Sender: FDA-Public Use
  Company Number: US-ACTELION-A-NJ2014-099660

PATIENT
  Age: 66 Year
  Sex: Female

DRUGS (7)
  1. VENTAVIS [Suspect]
     Indication: PULMONARY ARTERIAL HYPERTENSION
     Dosage: 5 MCG, 5-6 TIMES
     Route: 055
     Dates: start: 201106
  2. TUMS [Suspect]
  3. SILDENAFIL [Concomitant]
     Dosage: 80 MG, TID
  4. LASIX [Concomitant]
  5. METOLAZONE [Concomitant]
  6. SPIRONOLACTONE [Concomitant]
  7. ZANTAC [Concomitant]

REACTIONS (1)
  - Overdose [Recovered/Resolved]
